FAERS Safety Report 19494665 (Version 1)
Quarter: 2021Q3

REPORT INFORMATION
  Report Type: Spontaneous
  Country: JP (occurrence: JP)
  Receive Date: 20210706
  Receipt Date: 20210706
  Transmission Date: 20211014
  Serious: Yes (Life-Threatening, Hospitalization, Other)
  Sender: FDA-Public Use
  Company Number: JP-LUPIN PHARMACEUTICALS INC.-2021-10869

PATIENT
  Age: 65 Year
  Sex: Female

DRUGS (15)
  1. CEFTRIAXONE. [Concomitant]
     Active Substance: CEFTRIAXONE
     Indication: KERATITIS
     Dosage: 2 GRAM
     Route: 065
  2. BETAMETHASONE. [Suspect]
     Active Substance: BETAMETHASONE
     Indication: KERATITIS
     Dosage: 0.1 PERCENT (INCREASED TO SIX TIMES DAILY)
     Route: 065
  3. TOCILIZUMAB. [Suspect]
     Active Substance: TOCILIZUMAB
     Dosage: 8 MILLIGRAM/KILOGRAM (7 DAYS AFTER HOSPITALISATION)
     Route: 065
  4. NATAMYCIN [Concomitant]
     Active Substance: NATAMYCIN
     Indication: FUSARIUM INFECTION
     Dosage: UNK (OINTMENT 6 TIMES DAILY)
     Route: 065
  5. FLUOROMETHOLONE. [Suspect]
     Active Substance: FLUOROMETHOLONE
     Indication: FUSARIUM INFECTION
     Dosage: UNK
     Route: 065
  6. TACROLIMUS. [Concomitant]
     Active Substance: TACROLIMUS
     Indication: KERATITIS
     Dosage: 0.1 PERCENT, BID
     Route: 065
  7. PREDNISOLONE. [Suspect]
     Active Substance: PREDNISOLONE
     Indication: KERATITIS
     Dosage: 10 MILLIGRAM
     Route: 048
  8. BETAMETHASONE. [Suspect]
     Active Substance: BETAMETHASONE
     Indication: KERATITIS
     Dosage: 0.1 PERCENT, QID
     Route: 065
  9. DEXAMETHASONE. [Suspect]
     Active Substance: DEXAMETHASONE
     Indication: KERATITIS
     Dosage: UNK
     Route: 057
  10. TOBRAMYCIN. [Concomitant]
     Active Substance: TOBRAMYCIN
     Indication: KERATITIS
     Dosage: UNK (HOURLY)
     Route: 065
  11. VORICONAZOLE. [Concomitant]
     Active Substance: VORICONAZOLE
     Indication: FUSARIUM INFECTION
     Dosage: UNK (HOURLY)
     Route: 061
  12. TOCILIZUMAB. [Suspect]
     Active Substance: TOCILIZUMAB
     Indication: RHEUMATOID ARTHRITIS
     Dosage: 8 MILLIGRAM/KILOGRAM
     Route: 065
  13. BETAMETHASONE. [Suspect]
     Active Substance: BETAMETHASONE
     Dosage: 0.1 PERCENT, TID (REDUCED)
     Route: 065
  14. MOXIFLOXACIN. [Concomitant]
     Active Substance: MOXIFLOXACIN
     Indication: KERATITIS
     Dosage: UNK (HOURLY)
     Route: 061
  15. AMPHOTERICIN B, LIPOSOME [Concomitant]
     Active Substance: AMPHOTERICIN B
     Indication: FUSARIUM INFECTION
     Dosage: 125 MILLIGRAM, QD
     Route: 065

REACTIONS (5)
  - Off label use [Unknown]
  - Hypopyon [Recovered/Resolved]
  - Endophthalmitis [Recovered/Resolved]
  - Fusarium infection [Recovered/Resolved]
  - Condition aggravated [Recovered/Resolved]
